FAERS Safety Report 9265173 (Version 1)
Quarter: 2013Q2

REPORT INFORMATION
  Report Type: Spontaneous
  Country: AU (occurrence: AU)
  Receive Date: 20130501
  Receipt Date: 20130501
  Transmission Date: 20140414
  Serious: Yes (Life-Threatening)
  Sender: FDA-Public Use
  Company Number: AU-PFIZER INC-2013134877

PATIENT
  Age: 73 Year
  Sex: Female

DRUGS (3)
  1. AMIODARONE HCL [Suspect]
     Dosage: 200MG EVERY OTHER DAY
     Route: 065
     Dates: end: 20130108
  2. SIMVASTATIN [Suspect]
     Dosage: 40 MG DAILY
     Route: 065
     Dates: end: 20130108
  3. KETOCONAZOLE [Suspect]
     Indication: FUNGAL INFECTION
     Dosage: 200 MG DAILY
     Route: 065
     Dates: start: 20121115, end: 20130108

REACTIONS (1)
  - Myositis [Unknown]
